FAERS Safety Report 21151550 (Version 1)
Quarter: 2022Q3

REPORT INFORMATION
  Report Type: Spontaneous
  Country: NL (occurrence: NL)
  Receive Date: 20220730
  Receipt Date: 20220730
  Transmission Date: 20221027
  Serious: Yes (Death, Life-Threatening)
  Sender: FDA-Public Use
  Company Number: None

PATIENT
  Age: 62 Year
  Sex: Female
  Weight: 60 kg

DRUGS (4)
  1. CAPECITABINE [Suspect]
     Active Substance: CAPECITABINE
     Indication: Breast cancer metastatic
     Dosage: STRENGTH: 500MG, 2X PER DAY 4 PIECE
     Dates: start: 20220401, end: 20220417
  2. EUTHYROX [Concomitant]
     Active Substance: LEVOTHYROXINE SODIUM
     Dosage: STRENGTH: 50 MCG (MICROGRAM), 50 MCG
  3. PANTOPRAZOLE SODIUM [Concomitant]
     Active Substance: PANTOPRAZOLE SODIUM
     Dosage: STRENGTH: 40MG, 40 MG (MILLIGRAMS)
  4. METHIMAZOLE [Concomitant]
     Active Substance: METHIMAZOLE
     Dosage: STRENGTH: 10MG, 10 MG (MILLIGRAM)

REACTIONS (2)
  - Diarrhoea [Fatal]
  - Mucosal inflammation [Fatal]

NARRATIVE: CASE EVENT DATE: 20220417
